FAERS Safety Report 11364573 (Version 3)
Quarter: 2015Q3

REPORT INFORMATION
  Report Type: Spontaneous
  Country: JP (occurrence: JP)
  Receive Date: 20150811
  Receipt Date: 20150827
  Transmission Date: 20151125
  Serious: Yes (Death, Other)
  Sender: FDA-Public Use
  Company Number: JP-GLAXOSMITHKLINE-JP2015JPN113601

PATIENT
  Age: 57 Year
  Sex: Male

DRUGS (6)
  1. EC-DOPARL [Concomitant]
     Active Substance: BENSERAZIDE HYDROCHLORIDE\LEVODOPA
     Dosage: 3 DF, 1D
  2. ELIQUIS [Concomitant]
     Active Substance: APIXABAN
     Dosage: 5 MG, 1D
  3. OLMETEC [Concomitant]
     Active Substance: OLMESARTAN MEDOXOMIL
     Dosage: 20 MG, QD
  4. REQUIP [Suspect]
     Active Substance: ROPINIROLE HYDROCHLORIDE
     Indication: PARKINSON^S DISEASE
     Dosage: 4 MG, BID
     Route: 048
     Dates: start: 20140613, end: 20150726
  5. ARTIST [Concomitant]
     Active Substance: CARVEDILOL
     Dosage: 5 MG, 1D
  6. AMLODIN [Concomitant]
     Active Substance: AMLODIPINE BESYLATE
     Dosage: 5 MG, QD

REACTIONS (3)
  - Cholesteatoma [Unknown]
  - Otitis media [Unknown]
  - Completed suicide [Fatal]

NARRATIVE: CASE EVENT DATE: 20150726
